FAERS Safety Report 10048343 (Version 2)
Quarter: 2014Q2

REPORT INFORMATION
  Report Type: Spontaneous
  Country: US (occurrence: US)
  Receive Date: 20140331
  Receipt Date: 20140519
  Transmission Date: 20141212
  Serious: Yes (Death, Hospitalization)
  Sender: FDA-Public Use
  Company Number: US-GLAXOSMITHKLINE-A1067336A

PATIENT
  Age: 66 Year
  Sex: Female

DRUGS (3)
  1. FLOLAN [Suspect]
     Indication: COR PULMONALE CHRONIC
     Dosage: 6.5NGKM CONTINUOUS
     Route: 042
     Dates: start: 20140319
  2. LETAIRIS [Concomitant]
  3. ADCIRCA [Concomitant]

REACTIONS (2)
  - Fluid retention [Unknown]
  - Death [Fatal]
